FAERS Safety Report 18933673 (Version 1)
Quarter: 2021Q1

REPORT INFORMATION
  Report Type: Spontaneous
  Country: US (occurrence: US)
  Receive Date: 20210224
  Receipt Date: 20210224
  Transmission Date: 20210420
  Serious: Yes (Death)
  Sender: FDA-Public Use
  Company Number: None

PATIENT
  Sex: Female

DRUGS (3)
  1. PROLIA [Suspect]
     Active Substance: DENOSUMAB
     Indication: OSTEOPOROSIS
     Dosage: ?          OTHER FREQUENCY:EVERY SIX MONTHS;?
     Route: 058
     Dates: start: 20181227
  2. FERROUSULM, ESOMEPRAZOLE, FUROSEMIDE, LISINOPRIL, METOPROLOL [Concomitant]
  3. HYDRALAZINE, PREDNISONE, ASPIRIN [Concomitant]

REACTIONS (1)
  - Death [None]
